FAERS Safety Report 8130218-6 (Version None)
Quarter: 2012Q1

REPORT INFORMATION
  Report Type: 
  Country: None (occurrence: None)
  Receive Date: 20120210
  Receipt Date: 20120126
  Transmission Date: 20120608
  Serious: Yes (Life-Threatening, Hospitalization)
  Sender: FDA-Public Use
  Company Number: PHHO2012TR001814

PATIENT
  Age: 65 Year
  Sex: Female
  Weight: 87 kg

DRUGS (2)
  1. ZOLEDRONOC ACID [Suspect]
     Indication: OSTEOPOROSIS POSTMENOPAUSAL
     Dosage: 5 MG, UNK
     Route: 042
     Dates: start: 20101019
  2. CORASPIN [Concomitant]
     Indication: HYPERTENSION
     Dosage: 300 MG, UNK

REACTIONS (2)
  - ACUTE MYOCARDIAL INFARCTION [None]
  - CONCOMITANT DISEASE PROGRESSION [None]
